FAERS Safety Report 4933655-3 (Version None)
Quarter: 2006Q1

REPORT INFORMATION
  Report Type: 
  Country: None (occurrence: None)
  Receive Date: 20060306
  Receipt Date: 20060223
  Transmission Date: 20060701
  Serious: Yes (Other)
  Sender: FDA-Public Use
  Company Number: SE-BRISTOL-MYERS SQUIBB COMPANY-13294491

PATIENT
  Age: 67 Year
  Sex: Male

DRUGS (1)
  1. MITOMYCIN [Suspect]
     Indication: BLADDER CANCER RECURRENT
     Route: 043
     Dates: start: 20051006, end: 20051006

REACTIONS (1)
  - CYSTITIS HAEMORRHAGIC [None]
